FAERS Safety Report 9729299 (Version 3)
Quarter: 2013Q4

REPORT INFORMATION
  Report Type: Spontaneous
  Country: JP (occurrence: JP)
  Receive Date: 20131204
  Receipt Date: 20131216
  Transmission Date: 20140711
  Serious: Yes (Death, Hospitalization)
  Sender: FDA-Public Use
  Company Number: JP-MALLINCKRODT-T201304961

PATIENT
  Age: 80 Year
  Sex: Male
  Weight: 76 kg

DRUGS (14)
  1. OPTIRAY [Suspect]
     Indication: ARTERIOGRAM CORONARY
     Dosage: UNK ML, SINGLE
     Route: 013
     Dates: start: 20110811, end: 20110811
  2. OPTIRAY [Suspect]
     Indication: ANGIOGRAM PERIPHERAL
  3. POLYCARBOPHIL CALCIUM [Concomitant]
  4. CLOSTRIDIUM BUTYRICUM [Concomitant]
  5. DIPYRIDAMOLE [Concomitant]
  6. CLOPIDOGREL SULFATE [Concomitant]
  7. ASPIRIN [Concomitant]
  8. ATORVASTATIN [Concomitant]
  9. GLIMEPIRIDE [Concomitant]
  10. VOGLIBOSE [Concomitant]
  11. CALCIUM CARBONATE [Concomitant]
  12. CARVEDILOL [Concomitant]
  13. LANSOPRAZOLE [Concomitant]
  14. ETHYL ICOSAPENTATE [Concomitant]

REACTIONS (4)
  - Gastrointestinal necrosis [Fatal]
  - Septic shock [Fatal]
  - Drug eruption [Recovering/Resolving]
  - Gastrointestinal mucosal disorder [Unknown]
